FAERS Safety Report 16653848 (Version 1)
Quarter: 2019Q3

REPORT INFORMATION
  Report Type: Spontaneous
  Country: US (occurrence: US)
  Receive Date: 20190731
  Receipt Date: 20190731
  Transmission Date: 20191004
  Serious: No
  Sender: FDA-Public Use
  Company Number: US-MYLANLABS-2019M1067775

PATIENT
  Age: 8 Year
  Sex: Male

DRUGS (2)
  1. GUANFACINE TABLETS, USP [Suspect]
     Active Substance: GUANFACINE
     Indication: ATTENTION DEFICIT/HYPERACTIVITY DISORDER
     Dosage: 4 MILLIGRAM, TOTAL
     Route: 048
  2. GUANFACINE TABLETS, USP [Suspect]
     Active Substance: GUANFACINE
     Indication: AUTISM SPECTRUM DISORDER

REACTIONS (3)
  - Somnolence [Unknown]
  - Product availability issue [Unknown]
  - Off label use [Not Recovered/Not Resolved]
